FAERS Safety Report 6312048-0 (Version None)
Quarter: 2009Q3

REPORT INFORMATION
  Report Type: 
  Country: None (occurrence: None)
  Receive Date: 20090817
  Receipt Date: 20090811
  Transmission Date: 20100115
  Serious: Yes (Hospitalization)
  Sender: FDA-Public Use
  Company Number: PHHY2009JP24605

PATIENT
  Sex: Female
  Weight: 51 kg

DRUGS (3)
  1. FEMARA [Suspect]
     Indication: BREAST CANCER
     Dosage: 2.5 MG, QD
     Route: 048
     Dates: start: 20090409, end: 20090519
  2. RADIATION THERAPY [Concomitant]
     Dosage: UNK
     Dates: start: 20090421, end: 20090603
  3. VALTREX [Concomitant]
     Indication: HERPES ZOSTER
     Dosage: 3000 MG, UNK
     Dates: start: 20090324, end: 20090330

REACTIONS (4)
  - BLOOD DISORDER [None]
  - BONE MARROW FAILURE [None]
  - NEUTROPENIA [None]
  - WHITE BLOOD CELL COUNT DECREASED [None]
